FAERS Safety Report 24415932 (Version 6)
Quarter: 2025Q3

REPORT INFORMATION
  Report Type: Spontaneous
  Country: US (occurrence: US)
  Receive Date: 20241009
  Receipt Date: 20250926
  Transmission Date: 20251021
  Serious: Yes (Other)
  Sender: BAYER HEALTHCARE PHARMACEUTICALS INC.
  Company Number: US-009507513-2409USA007908

PATIENT
  Age: 73 Year
  Sex: Female
  Weight: 83 kg

DRUGS (31)
  1. VERQUVO [Interacting]
     Active Substance: VERICIGUAT
     Indication: Product used for unknown indication
     Route: 048
  2. ENTRESTO [Interacting]
     Active Substance: SACUBITRIL\VALSARTAN
     Indication: Product used for unknown indication
  3. TYVASO DPI [Suspect]
     Active Substance: TREPROSTINIL
     Indication: Pulmonary arterial hypertension
     Dosage: 16 ?G, QID
     Dates: start: 20240819, end: 202409
  4. TYVASO DPI [Suspect]
     Active Substance: TREPROSTINIL
     Indication: Pulmonary arterial hypertension
     Dosage: 32 ?G, QID
     Dates: start: 202409, end: 202409
  5. TYVASO DPI [Suspect]
     Active Substance: TREPROSTINIL
     Indication: Pulmonary arterial hypertension
     Dosage: 16 ?G, QID
     Dates: start: 20240919
  6. WINREVAIR [Suspect]
     Active Substance: SOTATERCEPT-CSRK
     Indication: Product used for unknown indication
  7. TADALAFIL [Suspect]
     Active Substance: TADALAFIL
     Indication: Product used for unknown indication
     Dates: end: 2024
  8. TADALAFIL [Suspect]
     Active Substance: TADALAFIL
     Indication: Product used for unknown indication
     Dates: start: 202409
  9. ADEMPAS [Suspect]
     Active Substance: RIOCIGUAT
     Indication: Pulmonary arterial hypertension
     Dates: start: 20240905
  10. ADEMPAS [Suspect]
     Active Substance: RIOCIGUAT
     Indication: Pulmonary arterial hypertension
     Dosage: 1 MG, TID
  11. ADEMPAS [Suspect]
     Active Substance: RIOCIGUAT
     Indication: Pulmonary arterial hypertension
     Dates: start: 2024, end: 2024
  12. OPSUMIT [Suspect]
     Active Substance: MACITENTAN
  13. CLONIDINE HYDROCHLORIDE [Concomitant]
     Active Substance: CLONIDINE HYDROCHLORIDE
  14. Convallaria majalis;Crataegus laevigata;Proxyphylline [Concomitant]
  15. FIBER LAX [Concomitant]
     Active Substance: CALCIUM POLYCARBOPHIL
  16. COREG [Concomitant]
     Active Substance: CARVEDILOL
  17. CRESTOR [Concomitant]
     Active Substance: ROSUVASTATIN CALCIUM
  18. PROTONIX [Concomitant]
     Active Substance: PANTOPRAZOLE SODIUM
  19. HYDROXYCHLOROQUINE SULFATE [Concomitant]
     Active Substance: HYDROXYCHLOROQUINE SULFATE
  20. LEVOTHYROXINE SODIUM [Concomitant]
     Active Substance: LEVOTHYROXINE SODIUM
  21. MELATONIN [Concomitant]
     Active Substance: MELATONIN
  22. IRON [Concomitant]
     Active Substance: IRON
  23. TRAZODONE HCL [Concomitant]
     Active Substance: TRAZODONE HYDROCHLORIDE
  24. HYDRALAZINE HCL [Concomitant]
     Active Substance: HYDRALAZINE HYDROCHLORIDE
  25. ASPIRIN [Concomitant]
     Active Substance: ASPIRIN
  26. COLCHICINE [Concomitant]
     Active Substance: COLCHICINE
  27. FISH OIL\OMEGA-3 FATTY ACIDS [Concomitant]
     Active Substance: FISH OIL\OMEGA-3 FATTY ACIDS
  28. COLACE [Concomitant]
     Active Substance: DOCUSATE SODIUM
  29. NOXZEMA [Concomitant]
     Active Substance: SALICYLIC ACID
  30. CARVEDILOL [Concomitant]
     Active Substance: CARVEDILOL
  31. ROSUVASTATIN CALCIUM [Concomitant]
     Active Substance: ROSUVASTATIN CALCIUM

REACTIONS (42)
  - Renal colic [Unknown]
  - Blood pressure fluctuation [Recovered/Resolved]
  - Drug interaction [Unknown]
  - Headache [Recovering/Resolving]
  - Palpitations [Recovered/Resolved]
  - Back pain [Not Recovered/Not Resolved]
  - Neck pain [Recovered/Resolved]
  - Joint stiffness [Recovered/Resolved]
  - Blood pressure decreased [Unknown]
  - Vision blurred [Recovering/Resolving]
  - Head discomfort [Recovering/Resolving]
  - Contraindicated product administered [Unknown]
  - Faeces discoloured [Unknown]
  - Pain [Unknown]
  - Rash pruritic [Unknown]
  - Scratch [Unknown]
  - Abdominal distension [Unknown]
  - Localised oedema [Unknown]
  - Feeling abnormal [Unknown]
  - Weight decreased [Unknown]
  - Chest pain [Unknown]
  - Cough [Unknown]
  - Renal pain [Unknown]
  - Fatigue [Unknown]
  - Blood urine present [Unknown]
  - Product preparation issue [Unknown]
  - Asthenia [Unknown]
  - Diarrhoea [Not Recovered/Not Resolved]
  - Abdominal pain [None]
  - Hypertension [Unknown]
  - Throat irritation [Unknown]
  - Gait inability [Unknown]
  - Heart rate increased [Unknown]
  - Illness [Unknown]
  - Fungal skin infection [Unknown]
  - Vomiting [Not Recovered/Not Resolved]
  - Urticaria [Unknown]
  - Joint swelling [Unknown]
  - Hypotension [Unknown]
  - Drug intolerance [Unknown]
  - Blood pressure systolic increased [None]
  - Weight increased [Unknown]

NARRATIVE: CASE EVENT DATE: 20240101
